FAERS Safety Report 23051230 (Version 1)
Quarter: 2023Q4

REPORT INFORMATION
  Report Type: Spontaneous
  Country: US (occurrence: None)
  Receive Date: 20231009
  Receipt Date: 20231009
  Transmission Date: 20240109
  Serious: Yes (unspecified)
  Sender: FDA-Public Use
  Company Number: None

PATIENT
  Age: 70 Year
  Sex: Female

DRUGS (1)
  1. HYDROXOCOBALAMIN [Suspect]
     Active Substance: HYDROXOCOBALAMIN
     Dosage: FREQUENCY : WEEKLY;?
     Route: 030
     Dates: start: 20230914, end: 20231009

REACTIONS (4)
  - Injection site pain [None]
  - Injection site erythema [None]
  - Injection site irritation [None]
  - Therapy cessation [None]

NARRATIVE: CASE EVENT DATE: 20230928
